FAERS Safety Report 23059460 (Version 1)
Quarter: 2023Q4

REPORT INFORMATION
  Report Type: Spontaneous
  Country: IT (occurrence: IT)
  Receive Date: 20231012
  Receipt Date: 20231012
  Transmission Date: 20240109
  Serious: Yes (Other)
  Sender: FDA-Public Use
  Company Number: None

PATIENT
  Age: 48 Year
  Sex: Female
  Weight: 50 kg

DRUGS (2)
  1. CARBOPLATIN [Suspect]
     Active Substance: CARBOPLATIN
     Indication: Biliary neoplasm
     Dosage: I CYCLE - START OF THERAPY 04/09/2023 - THERAPY SCHEME: DAY 1 AND 8 EVERY 21 DAYS
     Dates: start: 20230904, end: 20230904
  2. GEMCITABINE [Suspect]
     Active Substance: GEMCITABINE
     Indication: Biliary neoplasm
     Dosage: I CYCLE - START OF THERAPY 04/09/2023 - THERAPY SCHEME: DAY 1 AND 8 EVERY 21 DAYS
     Dates: start: 20230904, end: 20230904

REACTIONS (1)
  - Thrombocytopenia [Recovering/Resolving]

NARRATIVE: CASE EVENT DATE: 20230920
